FAERS Safety Report 10548120 (Version 1)
Quarter: 2014Q4

REPORT INFORMATION
  Report Type: Spontaneous
  Country: TR (occurrence: TR)
  Receive Date: 20141028
  Receipt Date: 20141028
  Transmission Date: 20150529
  Serious: Yes (Other)
  Sender: FDA-Public Use
  Company Number: TR-UCBSA-2014015292

PATIENT
  Age: 53 Year
  Sex: Male

DRUGS (10)
  1. KEPPRA [Suspect]
     Active Substance: LEVETIRACETAM
     Dosage: 3000MG
  2. KEPPRA [Suspect]
     Active Substance: LEVETIRACETAM
     Dosage: 1000MG
  3. KEPPRA [Suspect]
     Active Substance: LEVETIRACETAM
     Indication: SEIZURE
     Dosage: UNKNOW DOSE
  4. OXCARBAZEPINE. [Concomitant]
     Active Substance: OXCARBAZEPINE
     Indication: SEIZURE
     Dosage: 1800MG
     Dates: start: 2006
  5. PREGABALIN. [Concomitant]
     Active Substance: PREGABALIN
     Indication: SEIZURE
     Dosage: 300MG
  6. PREGABALIN. [Concomitant]
     Active Substance: PREGABALIN
     Dosage: 600MG
     Dates: start: 2012, end: 2012
  7. KEPPRA [Suspect]
     Active Substance: LEVETIRACETAM
     Dosage: 3000
  8. OXCARBAZEPINE. [Concomitant]
     Active Substance: OXCARBAZEPINE
     Dosage: 1800
  9. OXCARBAZEPINE. [Concomitant]
     Active Substance: OXCARBAZEPINE
     Dosage: 1500
  10. TOPIRAMATE. [Concomitant]
     Active Substance: TOPIRAMATE
     Indication: SEIZURE
     Dosage: 600MG
     Dates: start: 2006

REACTIONS (5)
  - Arachnoid cyst [Unknown]
  - Hypertension [Unknown]
  - Fall [Unknown]
  - Aggression [Unknown]
  - Seizure [Recovering/Resolving]
